FAERS Safety Report 10454288 (Version 4)
Quarter: 2015Q1

REPORT INFORMATION
  Report Type: Report from Study
  Country: US (occurrence: US)
  Receive Date: 20140915
  Receipt Date: 20150116
  Transmission Date: 20150720
  Serious: Yes (Hospitalization)
  Sender: FDA-Public Use
  Company Number: PHHO2014US011290

PATIENT
  Age: 63 Year
  Sex: Female
  Weight: 65.7 kg

DRUGS (23)
  1. AFINITOR [Suspect]
     Active Substance: EVEROLIMUS
     Indication: BREAST CANCER METASTATIC
     Dosage: 10 MG, UNK
     Route: 048
     Dates: start: 20140702, end: 20140814
  2. ONDANSETRON [Concomitant]
     Active Substance: ONDANSETRON
     Dosage: 4 MG, Q8H PRN
     Route: 048
     Dates: start: 20141217, end: 20150101
  3. SIMVASTATIN. [Concomitant]
     Active Substance: SIMVASTATIN
     Indication: HYPERLIPIDAEMIA
     Dosage: 20 MG, QD
     Route: 065
     Dates: end: 20140814
  4. CGS 20267 [Suspect]
     Active Substance: LETROZOLE
     Dosage: UNK
     Route: 048
     Dates: start: 20150108
  5. ONDANSETRON [Concomitant]
     Active Substance: ONDANSETRON
     Indication: NAUSEA
     Dosage: 8 MG, Q8H
     Route: 048
     Dates: start: 20140812, end: 20141216
  6. AMLODIPINE BESYLATE. [Concomitant]
     Active Substance: AMLODIPINE BESYLATE
     Indication: HYPERTENSION
     Dosage: 10 MG, QHS
     Route: 065
     Dates: end: 20140814
  7. CGS 20267 [Suspect]
     Active Substance: LETROZOLE
     Indication: BREAST CANCER METASTATIC
     Dosage: 2.5 MG, UNK
     Route: 065
     Dates: start: 20140702, end: 20150104
  8. HYDROCODONE BITARTRATE AND ACETAMINOPHEN [Concomitant]
     Active Substance: ACETAMINOPHEN\HYDROCODONE BITARTRATE
     Indication: PAIN
     Dosage: 335 MG, Q4H (10-325 MG Q4HRS) PRN
     Route: 065
     Dates: start: 20140702, end: 20150101
  9. CETIRIZINE HYDROCHLORIDE. [Concomitant]
     Active Substance: CETIRIZINE HYDROCHLORIDE
     Indication: SEASONAL ALLERGY
     Dosage: 10 MG, QD
     Route: 065
     Dates: end: 20140814
  10. LEVOTHROID [Concomitant]
     Active Substance: LEVOTHYROXINE SODIUM
     Indication: HYPOTHYROIDISM
     Dosage: 75 UG, QD
     Route: 048
     Dates: start: 2014, end: 20150101
  11. MORPHINE SULPHATE [Concomitant]
     Active Substance: MORPHINE SULFATE
     Indication: PAIN
     Dosage: 15 MG, Q4H
     Route: 065
     Dates: end: 20140814
  12. OMEPRAZOLE. [Concomitant]
     Active Substance: OMEPRAZOLE
     Indication: GASTROOESOPHAGEAL REFLUX DISEASE
     Dosage: 20 MG, QD
     Route: 048
     Dates: start: 2014, end: 20150101
  13. POTASSIUM PHOSPHATE [Concomitant]
     Active Substance: POTASSIUM PHOSPHATE
     Indication: ELECTROLYTE IMBALANCE
     Dosage: 500 MG, UNK
     Route: 065
     Dates: start: 20140911, end: 20150101
  14. AFINITOR [Suspect]
     Active Substance: EVEROLIMUS
     Dosage: UNK
     Route: 048
     Dates: start: 20150108
  15. PROCHLORPERAZINE MALEATE. [Concomitant]
     Active Substance: PROCHLORPERAZINE MALEATE
     Indication: NAUSEA
     Dosage: 10 MG, Q6H PRN
     Route: 048
     Dates: start: 20140702
  16. EVISTA [Concomitant]
     Active Substance: RALOXIFENE HYDROCHLORIDE
     Indication: BONE PAIN
     Dosage: 60 MG, QD
     Route: 048
     Dates: start: 2014, end: 20150101
  17. ZOLPIDEM [Concomitant]
     Active Substance: ZOLPIDEM\ZOLPIDEM TARTRATE
     Indication: INSOMNIA
     Dosage: 10 MG, QHS/PRN
     Route: 048
     Dates: start: 2014
  18. FENTANYL. [Concomitant]
     Active Substance: FENTANYL
     Indication: PAIN
     Dosage: 100 UG/HR, UNK
     Route: 062
     Dates: start: 20140723, end: 20150101
  19. DIOVAN HCT [Concomitant]
     Active Substance: HYDROCHLOROTHIAZIDE\VALSARTAN
     Indication: HYPERTENSION
     Dosage: 185 MG, QHS (160-25 MG QHS)
     Route: 065
     Dates: end: 20140814
  20. AFINITOR [Suspect]
     Active Substance: EVEROLIMUS
     Dosage: 10 MG, UNK
     Route: 048
     Dates: start: 20140828, end: 20150103
  21. IBUPROFEN. [Concomitant]
     Active Substance: IBUPROFEN
     Indication: PAIN
     Dosage: 600 MG, QD
     Route: 048
     Dates: start: 201405
  22. DURAGESIC [Concomitant]
     Active Substance: FENTANYL
     Indication: PAIN
     Dosage: 50 UG/HR, Q72H
     Route: 062
     Dates: start: 20141217, end: 20150101
  23. ATORVASTATIN CALCIUM. [Concomitant]
     Active Substance: ATORVASTATIN CALCIUM
     Indication: HYPERLIPIDAEMIA
     Dosage: 20 MG, QD
     Route: 048
     Dates: start: 20141001, end: 20150101

REACTIONS (3)
  - Escherichia urinary tract infection [Recovered/Resolved]
  - Gastroenteritis radiation [Recovered/Resolved]
  - Infectious colitis [Recovered/Resolved]

NARRATIVE: CASE EVENT DATE: 20140815
